FAERS Safety Report 25960414 (Version 1)
Quarter: 2025Q4

REPORT INFORMATION
  Report Type: Spontaneous
  Country: US (occurrence: US)
  Receive Date: 20251027
  Receipt Date: 20251027
  Transmission Date: 20260117
  Serious: Yes (Hospitalization)
  Sender: AMNEAL
  Company Number: US-AMNEAL PHARMACEUTICALS-2025-AMRX-04015

PATIENT
  Age: 52 Year
  Sex: Female

DRUGS (3)
  1. FLUDROCORTISONE ACETATE [Suspect]
     Active Substance: FLUDROCORTISONE ACETATE
     Indication: Product used for unknown indication
     Dosage: 0.15MG (SPLIT DAILY)
     Route: 065
  2. CRENESSITY [Suspect]
     Active Substance: CRINECERFONT
     Indication: Adrenogenital syndrome
     Dosage: 100 MILLIGRAM, 2X/DAY
     Route: 048
  3. HYDROCORTISONE [Suspect]
     Active Substance: HYDROCORTISONE
     Indication: Product used for unknown indication
     Dosage: 1.75 MG (SPLIT DAILY)
     Route: 065

REACTIONS (7)
  - Dehydration [Unknown]
  - Blood pressure decreased [Unknown]
  - Mental disorder [Unknown]
  - Blood pressure increased [Unknown]
  - Fatigue [Unknown]
  - Weight increased [Unknown]
  - Overdose [Unknown]

NARRATIVE: CASE EVENT DATE: 20250201
